FAERS Safety Report 10495528 (Version 1)
Quarter: 2014Q3

REPORT INFORMATION
  Report Type: Spontaneous
  Country: US (occurrence: None)
  Receive Date: 20140815
  Receipt Date: 20140815
  Transmission Date: 20150326
  Serious: Yes (Other)
  Sender: FDA-Public Use
  Company Number: ADR-2013-01037

PATIENT
  Age: 60 Year
  Sex: Female

DRUGS (2)
  1. ORAL BACLOFEN [Concomitant]
     Active Substance: BACLOFEN
  2. BACLOFEN INTRATHECAL [Suspect]
     Active Substance: BACLOFEN

REACTIONS (3)
  - Muscle spasms [None]
  - Pruritus [None]
  - Muscle spasticity [None]

NARRATIVE: CASE EVENT DATE: 20130524
